FAERS Safety Report 21574462 (Version 1)
Quarter: 2022Q4

REPORT INFORMATION
  Report Type: Spontaneous
  Country: None (occurrence: CN)
  Receive Date: 20221109
  Receipt Date: 20221109
  Transmission Date: 20230113
  Serious: Yes (Hospitalization)
  Sender: FDA-Public Use
  Company Number: CN-Jiangsu Hengrui Medicine Co., Ltd.-2134723

PATIENT
  Age: 78 Year
  Sex: Male

DRUGS (1)
  1. OXALIPLATIN [Suspect]
     Active Substance: OXALIPLATIN
     Indication: Rectal cancer
     Route: 041
     Dates: start: 20221017, end: 20221017

REACTIONS (1)
  - Infusion related reaction [Recovering/Resolving]

NARRATIVE: CASE EVENT DATE: 20221017
